FAERS Safety Report 10017282 (Version 1)
Quarter: 2014Q1

REPORT INFORMATION
  Report Type: Spontaneous
  Country: US (occurrence: US)
  Receive Date: 20140318
  Receipt Date: 20140318
  Transmission Date: 20141002
  Serious: Yes (Disabling)
  Sender: FDA-Public Use
  Company Number: US-JNJFOC-20140306498

PATIENT
  Age: 57 Year
  Sex: Male
  Weight: 120.2 kg

DRUGS (2)
  1. XARELTO [Suspect]
     Indication: CARDIOVERSION
     Route: 048
  2. XARELTO [Suspect]
     Indication: CEREBROVASCULAR ACCIDENT PROPHYLAXIS
     Route: 048

REACTIONS (2)
  - Diarrhoea [Recovered/Resolved]
  - Quality of life decreased [Recovering/Resolving]
